FAERS Safety Report 5196516-3 (Version None)
Quarter: 2006Q4

REPORT INFORMATION
  Report Type: 
  Country: None (occurrence: None)
  Receive Date: 20061227
  Receipt Date: 20061221
  Transmission Date: 20070319
  Serious: Yes (Death, Life-Threatening)
  Sender: FDA-Public Use
  Company Number: 430009E06ITA

PATIENT
  Age: 67 Year
  Sex: Male

DRUGS (6)
  1. NOVANTRONE [Suspect]
     Dosage: 14 MG, NOT REPORTED, UNKNOWN
     Dates: start: 20060710, end: 20060714
  2. CYTARABINE [Suspect]
     Dosage: 195 MG, NOT REPORTED, UNKNOWN
     Dates: start: 20060710, end: 20060716
  3. ETOPOSIDE [Suspect]
     Dosage: 195 MG, NOT REPORTED, UNKNOWN
     Dates: start: 20060710, end: 20060712
  4. TEICOPLANIN [Concomitant]
  5. MEROPENEM [Concomitant]
  6. ANTIFUNGALS [Concomitant]

REACTIONS (4)
  - BRONCHOPNEUMONIA [None]
  - CARDIO-RESPIRATORY ARREST [None]
  - RESPIRATORY FAILURE [None]
  - VENTRICULAR FIBRILLATION [None]
